FAERS Safety Report 24859120 (Version 1)
Quarter: 2025Q1

REPORT INFORMATION
  Report Type: Spontaneous
  Country: DE (occurrence: DE)
  Receive Date: 20250118
  Receipt Date: 20250118
  Transmission Date: 20250408
  Serious: Yes (Other)
  Sender: ACCORD
  Company Number: None

PATIENT
  Age: 21 Year
  Sex: Male

DRUGS (5)
  1. QUETIAPINE [Interacting]
     Active Substance: QUETIAPINE
     Indication: Product used for unknown indication
     Dates: start: 20240202, end: 20240205
  2. ZUCLOPENTHIXOL [Interacting]
     Active Substance: ZUCLOPENTHIXOL
     Indication: Product used for unknown indication
     Dates: start: 20240202
  3. MIRTAZAPINE [Interacting]
     Active Substance: MIRTAZAPINE
     Indication: Product used for unknown indication
     Dosage: B.A.W.
     Dates: start: 20240130
  4. DIAZEPAM [Concomitant]
     Active Substance: DIAZEPAM
     Dates: start: 20240205
  5. LORAZEPAM [Concomitant]
     Active Substance: LORAZEPAM
     Dosage: STRENGTH: 4 MG
     Dates: start: 20240128, end: 20240212

REACTIONS (5)
  - Dyskinesia [Recovered/Resolved]
  - Dystonia [Recovered/Resolved]
  - Torticollis [Recovered/Resolved]
  - Dysphagia [Recovered/Resolved]
  - Drug interaction [Unknown]

NARRATIVE: CASE EVENT DATE: 20240205
